FAERS Safety Report 5497769-4 (Version None)
Quarter: 2007Q4

REPORT INFORMATION
  Report Type: 
  Country: None (occurrence: None)
  Receive Date: 20071025
  Receipt Date: 20070223
  Transmission Date: 20080405
  Serious: No
  Sender: FDA-Public Use
  Company Number: A0640779A

PATIENT
  Age: 67 Year
  Sex: Female

DRUGS (4)
  1. ADVAIR DISKUS 100/50 [Suspect]
     Dosage: 1PUFF TWICE PER DAY
     Route: 055
     Dates: start: 20070209
  2. RIFAMPIN [Suspect]
     Indication: DRUG USE FOR UNKNOWN INDICATION
     Route: 065
     Dates: start: 20070211
  3. ETHAMBUTOL HCL [Suspect]
     Indication: DRUG USE FOR UNKNOWN INDICATION
     Route: 065
     Dates: start: 20070210
  4. METHYLPREDNISOLONE [Concomitant]

REACTIONS (6)
  - EYE SWELLING [None]
  - EYELID PTOSIS [None]
  - LACRIMATION INCREASED [None]
  - PRURITUS [None]
  - SKIN EXFOLIATION [None]
  - VULVOVAGINAL MYCOTIC INFECTION [None]
